FAERS Safety Report 11932650 (Version 1)
Quarter: 2016Q1

REPORT INFORMATION
  Report Type: Spontaneous
  Country: US (occurrence: US)
  Receive Date: 20160120
  Receipt Date: 20160120
  Transmission Date: 20160526
  Serious: No
  Sender: FDA-Public Use
  Company Number: US-ALLERGAN-1521813US

PATIENT
  Sex: Female
  Weight: 67.6 kg

DRUGS (8)
  1. PREDNISOLONE ACETATE, 1.0% [Suspect]
     Active Substance: PREDNISOLONE ACETATE
     Indication: POST PROCEDURAL INFLAMMATION
     Dosage: UNK
     Route: 047
     Dates: start: 201509, end: 20151004
  2. OFLOXACIN, 0.3% [Suspect]
     Active Substance: OFLOXACIN
     Indication: POST PROCEDURAL INFLAMMATION
     Dosage: 2 GTT, QID
     Route: 047
     Dates: start: 20150908, end: 20151004
  3. SYNTHROID [Concomitant]
     Active Substance: LEVOTHYROXINE SODIUM
     Indication: PRODUCT USED FOR UNKNOWN INDICATION
  4. PREDNISONE. [Concomitant]
     Active Substance: PREDNISONE
     Indication: NASOPHARYNGITIS
  5. FISH OIL [Concomitant]
     Active Substance: FISH OIL
     Indication: PRODUCT USED FOR UNKNOWN INDICATION
  6. KETOROLAC TROMETHAMINE 0.4% [Suspect]
     Active Substance: KETOROLAC TROMETHAMINE
     Indication: POST PROCEDURAL INFLAMMATION
     Dosage: UNK
     Route: 047
     Dates: start: 201509, end: 20151004
  7. LOTEPREDNOL ETABONATE [Concomitant]
     Active Substance: LOTEPREDNOL ETABONATE
     Indication: DRUG THERAPY
     Dosage: UNK
     Route: 047
     Dates: start: 20150930, end: 20151004
  8. VITAMIN D3 [Concomitant]
     Active Substance: CHOLECALCIFEROL
     Indication: PRODUCT USED FOR UNKNOWN INDICATION

REACTIONS (2)
  - Hypersensitivity [Unknown]
  - Vision blurred [Recovering/Resolving]
